FAERS Safety Report 21330132 (Version 1)
Quarter: 2022Q3

REPORT INFORMATION
  Report Type: Spontaneous
  Country: CN (occurrence: CN)
  Receive Date: 20220913
  Receipt Date: 20220913
  Transmission Date: 20221026
  Serious: Yes (Other)
  Sender: FDA-Public Use
  Company Number: CN-009507513-2209CHN003634

PATIENT
  Age: 72 Year
  Sex: Female
  Weight: 62 kg

DRUGS (4)
  1. JANUMET [Suspect]
     Active Substance: METFORMIN HYDROCHLORIDE\SITAGLIPTIN PHOSPHATE
     Indication: Diabetes mellitus
     Dosage: 1 TABLET, TWICE A DAY (BID)
     Route: 048
     Dates: start: 20220412, end: 20220902
  2. JANUVIA [Suspect]
     Active Substance: SITAGLIPTIN PHOSPHATE
     Dosage: ONCE A DAY, 1 TABLET EACH TIME ORALLY FOR LONG-TERM
     Route: 048
  3. VALSARTAN [Concomitant]
     Active Substance: VALSARTAN
     Indication: Hypertension
     Dosage: 1 TABLET, ONCE A DAY
     Route: 048
     Dates: start: 20220412, end: 20220906
  4. METOPROLOL SUCCINATE [Concomitant]
     Active Substance: METOPROLOL SUCCINATE
     Indication: Hypertension
     Dosage: 1 TABLET, QD
     Route: 048
     Dates: start: 20220412, end: 20220906

REACTIONS (2)
  - Diabetes mellitus inadequate control [Unknown]
  - Diarrhoea [Recovered/Resolved]

NARRATIVE: CASE EVENT DATE: 20220428
